FAERS Safety Report 9730542 (Version 2)
Quarter: 2014Q1

REPORT INFORMATION
  Report Type: Spontaneous
  Country: US (occurrence: US)
  Receive Date: 20131202
  Receipt Date: 20140102
  Transmission Date: 20141002
  Serious: No
  Sender: FDA-Public Use
  Company Number: US-AMGEN-USASP2013077679

PATIENT
  Age: 53 Year
  Sex: Female
  Weight: 77.1 kg

DRUGS (2)
  1. ENBREL [Suspect]
     Indication: RHEUMATOID ARTHRITIS
     Dosage: 50 MG, QWK
     Route: 065
     Dates: start: 20130813, end: 20130813
  2. METHOTREXATE [Concomitant]
     Dosage: 0.3 MG, QWK
     Dates: start: 201305

REACTIONS (7)
  - Arthropod bite [Recovered/Resolved]
  - Eye swelling [Recovered/Resolved]
  - Rash generalised [Not Recovered/Not Resolved]
  - Pruritus generalised [Not Recovered/Not Resolved]
  - Injection site erythema [Not Recovered/Not Resolved]
  - Injection site swelling [Not Recovered/Not Resolved]
  - Injection site pain [Not Recovered/Not Resolved]
